FAERS Safety Report 7102678-0 (Version None)
Quarter: 2010Q4

REPORT INFORMATION
  Report Type: 
  Country: None (occurrence: None)
  Receive Date: 20101115
  Receipt Date: 20080211
  Transmission Date: 20110411
  Serious: Yes (Life-Threatening, Hospitalization)
  Sender: FDA-Public Use
  Company Number: PHRM2008FR00803

PATIENT
  Sex: Male

DRUGS (7)
  1. EXELON [Suspect]
     Dosage: UNK, UNK
     Route: 048
     Dates: start: 20060101, end: 20070715
  2. EXELON [Suspect]
     Dosage: MORE THAN 9 MG
     Route: 048
     Dates: start: 20070716, end: 20070716
  3. DEPAMIDE [Concomitant]
  4. RISPERDAL [Concomitant]
  5. PARKINANE [Concomitant]
  6. LASIX [Concomitant]
  7. KARDEGIC [Concomitant]

REACTIONS (4)
  - BRADYCARDIA [None]
  - CARDIAC ARREST [None]
  - INCORRECT DOSE ADMINISTERED [None]
  - TORSADE DE POINTES [None]
